FAERS Safety Report 7299550-2 (Version None)
Quarter: 2011Q1

REPORT INFORMATION
  Report Type: 
  Country: None (occurrence: None)
  Receive Date: 20110217
  Receipt Date: 20110207
  Transmission Date: 20110831
  Serious: Yes (Death, Hospitalization)
  Sender: FDA-Public Use
  Company Number: JP-BAYER-200912744BYL

PATIENT
  Sex: Male
  Weight: 53 kg

DRUGS (24)
  1. GASTER [Concomitant]
     Indication: GASTRITIS
     Dosage: 20 MG (DAILY DOSE), , ORAL
     Route: 048
     Dates: start: 20090718, end: 20090718
  2. ZOMETA [Concomitant]
     Dosage: 4 MG (DAILY DOSE), , INTRAVENOUS
     Route: 042
     Dates: start: 20090626, end: 20090801
  3. AMINOLEBAN [Concomitant]
     Dosage: 1 DF (DAILY DOSE), , INTRAVENOUS
     Route: 042
     Dates: start: 20090710, end: 20090801
  4. NEXAVAR [Suspect]
     Indication: HEPATIC NEOPLASM MALIGNANT
     Route: 048
     Dates: start: 20090620, end: 20090717
  5. VOLTAREN [Concomitant]
     Dosage: BEFORE NEXAVAR ADMINISTRATION
     Route: 048
  6. DECADRON [Concomitant]
     Dosage: 95 MG (DAILY DOSE), , ORAL
     Route: 048
     Dates: start: 20090627
  7. LIVACT [Concomitant]
     Dosage: BEFORE NEXAVAR ADMINISTRATION
     Route: 048
  8. POTACOL-R [Concomitant]
     Dosage: 800 ML (DAILY DOSE), , INTRAVENOUS
     Route: 042
     Dates: start: 20090711, end: 20090801
  9. VITAMEDIN [Concomitant]
     Dosage: 1 DF (DAILY DOSE), , INTRAVENOUS
     Route: 042
     Dates: start: 20090710, end: 20090801
  10. ALLOID G [Concomitant]
     Dosage: 60 ML (DAILY DOSE), , ORAL
     Route: 048
     Dates: start: 20090707
  11. PRIMPERAN TAB [Concomitant]
     Dosage: 10 MG (DAILY DOSE), , INTRAVENOUS
     Route: 042
     Dates: start: 20090715, end: 20090801
  12. INSULIN [Concomitant]
     Dates: start: 20090719
  13. DECADRON [Concomitant]
     Dosage: 8 MG (DAILY DOSE), , INTRAVENOUS
     Route: 042
     Dates: start: 20090626, end: 20090801
  14. ALBUMINAR [Concomitant]
     Dosage: 50 ML (DAILY DOSE), , INTRAVENOUS
     Route: 042
     Dates: start: 20090718, end: 20090721
  15. AMINO ACIDS/CARBOHYDRATES/MINERALS/VITAMINS, [Concomitant]
     Dosage: 1 L (DAILY DOSE), , INTRAVENOUS
     Route: 042
     Dates: start: 20090719, end: 20090801
  16. PETROLATUM [PETROLATUM] [Concomitant]
     Indication: XEROSIS
     Dosage: 1 DF (DAILY DOSE), , TOPICAL
     Route: 061
     Dates: start: 20090623, end: 20090623
  17. URSO 250 [Concomitant]
     Dosage: 600 MG (DAILY DOSE), , ORAL
     Route: 048
     Dates: start: 20090710
  18. PARIET [Concomitant]
     Indication: GASTRITIS
     Dosage: BEFORE NEXAVAR ADMINISTRATION
     Route: 048
  19. CYTOTEC [Concomitant]
     Dosage: BEFORE NEXAVAR ADMINISTRATION
     Route: 048
  20. GASTER [Concomitant]
     Dosage: 20 MG (DAILY DOSE), , INTRAVENOUS
     Route: 042
     Dates: start: 20090710, end: 20090801
  21. SOLUTIONS FOR PARENTERAL NUTRITION [Concomitant]
     Dosage: 1 DF (DAILY DOSE), , INTRAVENOUS
     Route: 042
     Dates: start: 20090710, end: 20090801
  22. SOLDEM 1 [Concomitant]
     Dosage: 500 ML (DAILY DOSE), , INTRAVENOUS
     Route: 042
     Dates: start: 20090710, end: 20090801
  23. SOLDEM 3A [Concomitant]
     Dosage: 500 ML (DAILY DOSE), , INTRAVENOUS
     Route: 042
     Dates: start: 20090711, end: 20090801
  24. KAYTWO N [Concomitant]
     Dosage: 10 MG (DAILY DOSE), , ORAL
     Route: 048
     Dates: start: 20090718, end: 20090801

REACTIONS (5)
  - PLATELET COUNT DECREASED [None]
  - DIARRHOEA [None]
  - DECREASED APPETITE [None]
  - HEPATIC FUNCTION ABNORMAL [None]
  - INTERSTITIAL LUNG DISEASE [None]
